FAERS Safety Report 4827184-5 (Version None)
Quarter: 2005Q4

REPORT INFORMATION
  Report Type: 
  Country: None (occurrence: None)
  Receive Date: 20051014
  Receipt Date: 20050901
  Transmission Date: 20060501
  Serious: No
  Sender: FDA-Public Use
  Company Number: 2005SP002603

PATIENT
  Age: 46 Year
  Sex: Female
  Weight: 81.6475 kg

DRUGS (9)
  1. LUNESTA [Suspect]
     Indication: SLEEP DISORDER
     Dosage: 3 MG;HS; ORAL
     Route: 048
     Dates: start: 20050723, end: 20050901
  2. FLEXERIL [Suspect]
     Dosage: HS; ORAL
     Route: 048
     Dates: start: 20050701
  3. LEXAPRO [Concomitant]
  4. BACLOFEN [Concomitant]
  5. REQUIP [Concomitant]
  6. IBUPROFEN [Concomitant]
  7. GALENIC /FEXOFENADINE HCL/PSEUDOEPHEDRINE/ [Concomitant]
  8. NASACORT [Concomitant]
  9. BETASERON [Concomitant]

REACTIONS (1)
  - DYSGEUSIA [None]
